FAERS Safety Report 9372638 (Version 1)
Quarter: 2013Q2

REPORT INFORMATION
  Report Type: Report from Study
  Country: US (occurrence: US)
  Receive Date: 20130627
  Receipt Date: 20130627
  Transmission Date: 20140414
  Serious: Yes (Death)
  Sender: FDA-Public Use
  Company Number: US-MYLANLABS-2013S1003721

PATIENT
  Age: 33 Year
  Sex: Male
  Weight: 131.54 kg

DRUGS (4)
  1. CLOZAPINE TABLETS [Suspect]
     Indication: SCHIZOPHRENIA
     Route: 048
     Dates: start: 19970519, end: 20130103
  2. CLOZAPINE TABLETS [Suspect]
     Indication: SCHIZOPHRENIA
     Route: 048
     Dates: start: 19970519, end: 20130103
  3. SERTRALINE [Concomitant]
  4. ZYPREXA [Concomitant]

REACTIONS (1)
  - Death [Fatal]
